FAERS Safety Report 8517411-5 (Version None)
Quarter: 2012Q3

REPORT INFORMATION
  Report Type: 
  Country: None (occurrence: None)
  Receive Date: 20120718
  Receipt Date: 20120712
  Transmission Date: 20120928
  Serious: Yes (Death)
  Sender: FDA-Public Use
  Company Number: US-ROCHE-1075677

PATIENT
  Sex: Female
  Weight: 78.542 kg

DRUGS (1)
  1. PEGASYS [Suspect]
     Indication: PRODUCT USED FOR UNKNOWN INDICATION

REACTIONS (2)
  - THROMBOSIS [None]
  - MYOCARDIAL INFARCTION [None]
